FAERS Safety Report 9915888 (Version 1)
Quarter: 2014Q1

REPORT INFORMATION
  Report Type: Report from Study
  Country: US (occurrence: US)
  Receive Date: 20140221
  Receipt Date: 20140221
  Transmission Date: 20141002
  Serious: Yes (Other)
  Sender: FDA-Public Use
  Company Number: US-ROCHE-1335486

PATIENT
  Age: 67 Year
  Sex: Female

DRUGS (17)
  1. LUCENTIS [Suspect]
     Indication: DIABETIC RETINOPATHY
     Route: 050
     Dates: start: 20110216
  2. LUCENTIS [Suspect]
     Indication: DIABETIC RETINAL OEDEMA
  3. AVASTIN [Suspect]
     Indication: PRODUCT USED FOR UNKNOWN INDICATION
     Dosage: RIGHT EYE
     Route: 050
     Dates: start: 20091021, end: 20091021
  4. AVASTIN [Suspect]
     Dosage: RIGHT EYE
     Route: 050
     Dates: start: 20100224, end: 20100224
  5. AVASTIN [Suspect]
     Dosage: LEFT EYE
     Route: 050
     Dates: start: 20091013, end: 20091013
  6. AVASTIN [Suspect]
     Dosage: LEFT EYE
     Route: 050
     Dates: start: 20100303, end: 20100303
  7. VICODIN [Concomitant]
  8. ACTOS [Concomitant]
  9. GLIPIZIDE [Concomitant]
  10. TRAMADOL [Concomitant]
  11. LISINOPRIL [Concomitant]
  12. PRIMIDONE [Concomitant]
  13. GABAPENTIN [Concomitant]
  14. ASPIRIN [Concomitant]
  15. PREMARIN [Concomitant]
  16. AVANDIA [Concomitant]
  17. LIPITOR [Concomitant]

REACTIONS (5)
  - Macular oedema [Unknown]
  - Device dislocation [Unknown]
  - Exudative retinopathy [Unknown]
  - Posterior capsule opacification [Unknown]
  - Visual acuity reduced [Unknown]
